FAERS Safety Report 8231055-4 (Version None)
Quarter: 2012Q1

REPORT INFORMATION
  Report Type: 
  Country: None (occurrence: None)
  Receive Date: 20120323
  Receipt Date: 20120316
  Transmission Date: 20120608
  Serious: No
  Sender: FDA-Public Use
  Company Number: US-PFIZER INC-2012070764

PATIENT
  Sex: Female

DRUGS (7)
  1. METFORMIN HYDROCHLORIDE [Concomitant]
     Dosage: 500MG (2 PO QAM AND 1TAB IN PM)
     Route: 048
     Dates: start: 20100303
  2. CALCIUM [Concomitant]
     Dosage: 600, 1 1TAB PO BID
     Route: 048
     Dates: start: 20101012
  3. LOVAZA [Concomitant]
     Dosage: 1000MG (2 CAPS) BID
     Route: 048
     Dates: start: 20111225
  4. VITAMIN D [Concomitant]
     Dosage: 2,000, 1TAB QD
     Route: 048
  5. MAXALT [Concomitant]
     Indication: HEADACHE
     Dosage: 10MG  (1 TAB)
     Route: 048
     Dates: start: 20100303
  6. ASPIRIN [Interacting]
     Dosage: 81 MG,1TAB 1X/DAY
     Route: 048
     Dates: start: 20080227
  7. GLUCOTROL [Suspect]
     Dosage: 5 MG,1TAB 2X/DAY
     Route: 048
     Dates: start: 20090126

REACTIONS (1)
  - DRUG INTERACTION [None]
